FAERS Safety Report 5165712-3 (Version None)
Quarter: 2006Q4

REPORT INFORMATION
  Report Type: 
  Country: None (occurrence: None)
  Receive Date: 20061128
  Receipt Date: 20061114
  Transmission Date: 20070319
  Serious: Yes (Other)
  Sender: FDA-Public Use
  Company Number: 2006-01365

PATIENT
  Age: 70 Year
  Sex: Female
  Weight: 59 kg

DRUGS (10)
  1. VELCADE [Suspect]
     Indication: B-CELL LYMPHOMA
     Dosage: 2.10 MG, UNK, INTRAVENOUS
     Route: 042
     Dates: start: 20051122, end: 20060127
  2. CORDARONE [Concomitant]
  3. FLECAINIDE ACETATE [Concomitant]
  4. BACTRIM [Concomitant]
  5. ZOCOR [Concomitant]
  6. IDEOS (COLECALCIFEROL, CALCIUM CARBONATE) TABLET [Concomitant]
  7. DIFFU K (POTASSIUM CHLORIDE) TABLET [Concomitant]
  8. CORTANCYL [Concomitant]
  9. FLUINDIONE (FLUINDIONE) CAPSULE [Concomitant]
  10. GUTRON (MIDODRINE HYDROCHLORIDE) TABLET [Concomitant]

REACTIONS (1)
  - RENAL FAILURE [None]
